FAERS Safety Report 6943296-4 (Version None)
Quarter: 2010Q3

REPORT INFORMATION
  Report Type: 
  Country: None (occurrence: None)
  Receive Date: 20100824
  Receipt Date: 20100726
  Transmission Date: 20110219
  Serious: Yes (Death, Hospitalization)
  Sender: FDA-Public Use
  Company Number: GAM-173-10-FR

PATIENT
  Age: 75 Year
  Sex: Male

DRUGS (10)
  1. OCTAGAM [Suspect]
     Indication: IDIOPATHIC THROMBOCYTOPENIC PURPURA
     Dosage: 80 G I.V.
     Route: 042
     Dates: start: 20100626, end: 20100626
  2. AMLODIPINE [Concomitant]
  3. FOZIRETIC (FOSINOPRIL AND HYDROCHLOROTHIAZIDE) [Concomitant]
  4. DESLORATADINE [Concomitant]
  5. PANTOPRAZOLE SODIUM [Concomitant]
  6. AUGMENTIN '125' [Concomitant]
  7. PERFALGAN (PARACETAMOL) [Concomitant]
  8. TOBREX [Concomitant]
  9. PLATELETS [Concomitant]
  10. TOPALGIC (TRAMADOL) [Concomitant]

REACTIONS (5)
  - CATHETER SITE HAEMORRHAGE [None]
  - COMA [None]
  - HYPOTHERMIA [None]
  - ISCHAEMIC STROKE [None]
  - LACTIC ACIDOSIS [None]
